FAERS Safety Report 10055931 (Version 1)
Quarter: 2014Q2

REPORT INFORMATION
  Report Type: Spontaneous
  Country: JP (occurrence: JP)
  Receive Date: 20140403
  Receipt Date: 20140403
  Transmission Date: 20141212
  Serious: Yes (Other)
  Sender: FDA-Public Use
  Company Number: JP-MYLANLABS-2014S1007095

PATIENT
  Age: 71 Year
  Sex: Male

DRUGS (5)
  1. PREDNISOLONE [Suspect]
     Indication: B-CELL LYMPHOMA
     Route: 048
  2. RITUXAN [Suspect]
     Indication: B-CELL LYMPHOMA
     Route: 041
  3. ENDOXAN [Suspect]
     Indication: B-CELL LYMPHOMA
     Route: 041
  4. DOXORUBICIN [Suspect]
     Indication: B-CELL LYMPHOMA
     Route: 042
  5. ONCOVIN [Suspect]
     Indication: B-CELL LYMPHOMA
     Route: 042

REACTIONS (2)
  - Granuloma [Recovering/Resolving]
  - Herpes virus infection [Recovering/Resolving]
